FAERS Safety Report 10367989 (Version 1)
Quarter: 2014Q3

REPORT INFORMATION
  Report Type: Spontaneous
  Country: BR (occurrence: None)
  Receive Date: 20140805
  Receipt Date: 20140805
  Transmission Date: 20150326
  Serious: Yes (Hospitalization)
  Sender: FDA-Public Use
  Company Number: FK201403082

PATIENT
  Age: 33 Year
  Sex: Male

DRUGS (2)
  1. METHOTREXATE (MANUFACTURER UNKNOWN) (METHOTREXATE) (METHOTREXATE) [Suspect]
     Active Substance: METHOTREXATE
     Indication: POLYMYOSITIS
  2. PREDNISONE (PREDNISONE) (PREDNISONE) [Suspect]
     Active Substance: PREDNISONE
     Indication: POLYMYOSITIS

REACTIONS (18)
  - Leukocytosis [None]
  - Acid fast bacilli infection [None]
  - Anaemia [None]
  - Thrombocytosis [None]
  - Lymphadenopathy [None]
  - Immunosuppression [None]
  - Pain in extremity [None]
  - Blood lactate dehydrogenase increased [None]
  - Oedema [None]
  - Muscular weakness [None]
  - Tachypnoea [None]
  - Pyrexia [None]
  - Blood creatine phosphokinase increased [None]
  - Acanthosis [None]
  - Pulmonary tuberculosis [None]
  - Nodule [None]
  - Tachycardia [None]
  - Normochromic normocytic anaemia [None]
